FAERS Safety Report 7799192-6 (Version None)
Quarter: 2011Q4

REPORT INFORMATION
  Report Type: 
  Country: None (occurrence: None)
  Receive Date: 20111006
  Receipt Date: 20110930
  Transmission Date: 20120403
  Serious: Yes (Other)
  Sender: FDA-Public Use
  Company Number: BR-ABBOTT-11P-020-0860131-00

PATIENT
  Sex: Male
  Weight: 78 kg

DRUGS (1)
  1. HUMIRA [Suspect]
     Indication: PSORIATIC ARTHROPATHY
     Route: 058
     Dates: start: 20090701

REACTIONS (5)
  - BLOOD CHOLESTEROL [None]
  - INFLAMMATION [None]
  - ABDOMINAL PAIN [None]
  - UMBILICAL HERNIA [None]
  - DIABETES MELLITUS [None]
